FAERS Safety Report 24411973 (Version 2)
Quarter: 2025Q1

REPORT INFORMATION
  Report Type: Spontaneous
  Country: US (occurrence: US)
  Receive Date: 20241008
  Receipt Date: 20250117
  Transmission Date: 20250409
  Serious: No
  Sender: ROCHE
  Company Number: US-ROCHE-10000097037

PATIENT
  Age: 65 Year
  Sex: Female

DRUGS (1)
  1. ALECENSA [Suspect]
     Active Substance: ALECTINIB HYDROCHLORIDE
     Indication: Lung neoplasm malignant
     Dosage: TAKE 4 CAPSULES (600MG) BY MOUTH TWICE DAILY
     Route: 048

REACTIONS (5)
  - Arthralgia [Unknown]
  - Pruritus [Unknown]
  - Dyspnoea [Unknown]
  - Flatulence [Unknown]
  - Asthenia [Unknown]
